FAERS Safety Report 5767945-1 (Version None)
Quarter: 2008Q2

REPORT INFORMATION
  Report Type: 
  Country: None (occurrence: None)
  Receive Date: 20080612
  Receipt Date: 20080603
  Transmission Date: 20081010
  Serious: Yes (Other)
  Sender: FDA-Public Use
  Company Number: US-PFIZER INC-2008047024

PATIENT
  Sex: Female
  Weight: 52.2 kg

DRUGS (2)
  1. ZOLOFT [Suspect]
     Indication: OBSESSIVE-COMPULSIVE DISORDER
     Route: 048
  2. LANOLIN [Suspect]

REACTIONS (4)
  - DERMATITIS CONTACT [None]
  - LICHENIFICATION [None]
  - LIP SWELLING [None]
  - STOMATITIS [None]
